FAERS Safety Report 11142426 (Version 2)
Quarter: 2015Q2

REPORT INFORMATION
  Report Type: Spontaneous
  Country: AU (occurrence: AU)
  Receive Date: 20150527
  Receipt Date: 20150528
  Transmission Date: 20150821
  Serious: Yes (Other)
  Sender: FDA-Public Use
  Company Number: PHHY2015AU063323

PATIENT
  Age: 50 Year
  Sex: Male

DRUGS (2)
  1. CICLOSPORIN [Suspect]
     Active Substance: CYCLOSPORINE
     Dosage: 200 MG, BID
     Route: 065
  2. CICLOSPORIN [Suspect]
     Active Substance: CYCLOSPORINE
     Indication: DERMATITIS
     Dosage: 250 MG, BID
     Route: 065

REACTIONS (4)
  - Squamous cell carcinoma [Unknown]
  - Renal impairment [Unknown]
  - Neuropathy peripheral [Unknown]
  - Gingival hypertrophy [Unknown]
